FAERS Safety Report 10009915 (Version 2)
Quarter: 2014Q1

REPORT INFORMATION
  Report Type: Spontaneous
  Country: US (occurrence: US)
  Receive Date: 20140312
  Receipt Date: 20140312
  Transmission Date: 20141002
  Serious: No
  Sender: FDA-Public Use
  Company Number: US-INCYTE CORPORATION-2013IN000216

PATIENT
  Sex: Male

DRUGS (4)
  1. JAKAFI [Suspect]
     Indication: POLYCYTHAEMIA VERA
     Dosage: 15 MG, BID
     Route: 048
     Dates: end: 20130130
  2. LEVOTHYROXINE [Concomitant]
  3. DEXAMETHASONE [Concomitant]
  4. SPIRIVA [Concomitant]
     Dosage: UNK UNK, BID

REACTIONS (1)
  - Nonspecific reaction [Unknown]
